FAERS Safety Report 9935612 (Version 1)
Quarter: 2014Q1

REPORT INFORMATION
  Report Type: Spontaneous
  Country: DE (occurrence: DE)
  Receive Date: 20140228
  Receipt Date: 20140228
  Transmission Date: 20141002
  Serious: Yes (Other)
  Sender: FDA-Public Use
  Company Number: PHHY2014DE021552

PATIENT
  Age: 37 Year
  Sex: Female

DRUGS (1)
  1. CANDESARTAN CILEXETIL [Suspect]
     Indication: HYPERTENSION
     Dosage: 16 MG, UNK

REACTIONS (3)
  - Premature delivery [Unknown]
  - Oligohydramnios [Recovering/Resolving]
  - Maternal exposure during pregnancy [Unknown]
